FAERS Safety Report 8269035-5 (Version None)
Quarter: 2012Q1

REPORT INFORMATION
  Report Type: 
  Country: None (occurrence: None)
  Receive Date: 20120327
  Receipt Date: 20091016
  Transmission Date: 20120608
  Serious: Yes (Life-Threatening, Hospitalization)
  Sender: FDA-Public Use
  Company Number: PHEH2009US08885

PATIENT
  Age: 72 Year
  Sex: Female
  Weight: 101.6 kg

DRUGS (22)
  1. SYNTHROID [Concomitant]
  2. AMITRIPTYLINE HCL [Concomitant]
  3. LISINOPRIL AND HYDROCHLOROTHIAZIDE [Concomitant]
  4. SPIRIVA [Concomitant]
  5. ADVAIR HFA [Concomitant]
  6. NEXIUM [Concomitant]
  7. METFORMIN HCL [Concomitant]
  8. DUONEB [Concomitant]
  9. ALENDRONATE SODIUM [Concomitant]
  10. ALUMINIUM HYDROXIDE W/MAGNESIUM HYDROXIDE (ALUMINIUM HYDROXIDE, MAGNES [Concomitant]
  11. ULTRAM [Concomitant]
  12. MULTI-VITAMINS [Concomitant]
  13. ALPRAZOLAM [Concomitant]
  14. CLARITIN [Concomitant]
  15. ALBUTEROL [Concomitant]
  16. CALCIUM W/VITAMINS D NOS (CALCIUM, VITAMIN D NOS) [Concomitant]
  17. ACTOS /USA/ (PIOGLITAZONE, PIOGLITAZONE HYDROCHLORIDE) [Concomitant]
  18. SPIRONOLACTONE [Concomitant]
  19. GLEEVEC [Suspect]
     Dosage: 400 MG/DAY, ORAL
     Route: 048
     Dates: start: 20090716
  20. MECLIZINE [Concomitant]
  21. GUAIFENESIN [Concomitant]
  22. REGLAN /USA/(METOCLOPRAMIDE HYDROCHLORIDE) [Concomitant]

REACTIONS (7)
  - SWOLLEN TONGUE [None]
  - ANGIOEDEMA [None]
  - ANXIETY [None]
  - PHARYNGEAL OEDEMA [None]
  - HEART RATE INCREASED [None]
  - CIRCUMORAL OEDEMA [None]
  - DYSPNOEA [None]
